FAERS Safety Report 19969901 (Version 1)
Quarter: 2021Q4

REPORT INFORMATION
  Report Type: Spontaneous
  Country: DE (occurrence: DE)
  Receive Date: 20211019
  Receipt Date: 20211019
  Transmission Date: 20220303
  Serious: Yes (Hospitalization)
  Sender: FDA-Public Use
  Company Number: DE-TEVA-238646ISR

PATIENT
  Age: 30 Year
  Sex: Male

DRUGS (3)
  1. VENLAFAXINE [Suspect]
     Active Substance: VENLAFAXINE HYDROCHLORIDE
     Indication: Product used for unknown indication
     Dosage: 300 MILLIGRAM DAILY;
     Route: 065
  2. QUETIAPINE [Concomitant]
     Active Substance: QUETIAPINE
     Indication: Product used for unknown indication
     Dosage: 700 MILLIGRAM DAILY; UP TO A MAXIMUM OF 700 MG PER DAY
     Route: 065
  3. QUETIAPINE [Concomitant]
     Active Substance: QUETIAPINE
     Dosage: 1200 MILLIGRAM DAILY;
     Route: 065

REACTIONS (8)
  - Psychomotor hyperactivity [Recovering/Resolving]
  - Mania [Recovered/Resolved]
  - Drug dependence [Unknown]
  - Withdrawal syndrome [Unknown]
  - Drug abuse [Unknown]
  - Intentional product misuse [Unknown]
  - Treatment noncompliance [Unknown]
  - Off label use [Unknown]
